FAERS Safety Report 19891846 (Version 1)
Quarter: 2021Q3

REPORT INFORMATION
  Report Type: Spontaneous
  Country: US (occurrence: US)
  Receive Date: 20210928
  Receipt Date: 20210928
  Transmission Date: 20211014
  Serious: No
  Sender: FDA-Public Use
  Company Number: US-QED THERAPEUTICS-2118915

PATIENT
  Age: 66 Year
  Sex: Male

DRUGS (1)
  1. TRUSELTIQ [Suspect]
     Active Substance: INFIGRATINIB
     Indication: CHOLANGIOCARCINOMA
     Route: 048
     Dates: start: 20210823

REACTIONS (4)
  - Dry skin [Unknown]
  - Erythema [Unknown]
  - Paranasal sinus hyposecretion [Unknown]
  - Dry eye [Unknown]
